FAERS Safety Report 6256908-8 (Version None)
Quarter: 2009Q3

REPORT INFORMATION
  Report Type: 
  Country: None (occurrence: None)
  Receive Date: 20090706
  Receipt Date: 20090701
  Transmission Date: 20100115
  Serious: Yes (Death, Hospitalization, Other)
  Sender: FDA-Public Use
  Company Number: PHHY2009BR26840

PATIENT
  Sex: Female

DRUGS (3)
  1. EXELON [Suspect]
     Indication: DEMENTIA ALZHEIMER'S TYPE
     Dosage: 9MG/5CM2, 1 PATCH EVEY 24 H
     Route: 062
  2. EXELON [Suspect]
     Dosage: 18MG/10CM2, 1 PATCH EVEY 24 H
     Route: 062
     Dates: end: 20090101
  3. EPOGEN [Concomitant]
     Indication: ANAEMIA

REACTIONS (5)
  - CARDIO-RESPIRATORY ARREST [None]
  - CEREBRAL ISCHAEMIA [None]
  - COMA [None]
  - FEELING ABNORMAL [None]
  - PNEUMONIA [None]
